FAERS Safety Report 8179854-1 (Version None)
Quarter: 2012Q1

REPORT INFORMATION
  Report Type: 
  Country: None (occurrence: None)
  Receive Date: 20120229
  Receipt Date: 20120229
  Transmission Date: 20120608
  Serious: Yes (Hospitalization)
  Sender: FDA-Public Use
  Company Number: None

PATIENT
  Sex: Female
  Weight: 69.5 kg

DRUGS (10)
  1. CARBOPLATIN [Suspect]
     Dosage: 704 MG
     Dates: end: 20111213
  2. TAXOL [Concomitant]
     Dosage: 315 MG
     Dates: end: 20111213
  3. LEVOFLOXACIN [Concomitant]
  4. POLYETHYLENE GLYCOL 3350 AND ELECTOLYTES [Concomitant]
  5. NORVASC [Concomitant]
  6. PROPRANOLOL [Concomitant]
  7. ACETAMINOPHEN [Concomitant]
  8. AMLODIPINE [Concomitant]
  9. HYDROCHLOROTHIAZIDE [Concomitant]
  10. RANITIDINE HCL [Concomitant]

REACTIONS (4)
  - VOMITING [None]
  - DEVICE RELATED INFECTION [None]
  - ABDOMINAL PAIN [None]
  - NAUSEA [None]
